FAERS Safety Report 14091688 (Version 2)
Quarter: 2017Q4

REPORT INFORMATION
  Report Type: Report from Study
  Country: US (occurrence: US)
  Receive Date: 20171016
  Receipt Date: 20171016
  Transmission Date: 20180321
  Serious: Yes (Other)
  Sender: FDA-Public Use
  Company Number: PHEH2017US030686

PATIENT
  Sex: Female

DRUGS (2)
  1. ENTRESTO [Suspect]
     Active Substance: SACUBITRIL\VALSARTAN
     Indication: PRODUCT USED FOR UNKNOWN INDICATION
     Dosage: 50 MG, BID
     Route: 065
  2. METOPROLOL. [Suspect]
     Active Substance: METOPROLOL
     Indication: PRODUCT USED FOR UNKNOWN INDICATION
     Route: 065

REACTIONS (14)
  - Speech disorder [Unknown]
  - Fall [Unknown]
  - Memory impairment [Unknown]
  - Joint injury [Unknown]
  - Cardiac failure [Unknown]
  - Loss of consciousness [Unknown]
  - Heart rate decreased [Unknown]
  - Dry skin [Unknown]
  - Skin wrinkling [Unknown]
  - Asthenia [Unknown]
  - Atrial fibrillation [Unknown]
  - Cerebrovascular accident [Unknown]
  - Weight decreased [Unknown]
  - Hypotension [Unknown]
